FAERS Safety Report 19742862 (Version 2)
Quarter: 2021Q3

REPORT INFORMATION
  Report Type: Other
  Country: CA (occurrence: CA)
  Receive Date: 20210825
  Receipt Date: 20210908
  Transmission Date: 20211014
  Serious: Yes (Other)
  Sender: FDA-Public Use
  Company Number: CA-ROCHE-2352683

PATIENT
  Age: 53 Year
  Sex: Female

DRUGS (16)
  1. BENADRYL [Concomitant]
     Active Substance: DIPHENHYDRAMINE HYDROCHLORIDE
     Indication: PREMEDICATION
     Route: 048
     Dates: start: 20190702
  2. CALCIUM [Concomitant]
     Active Substance: CALCIUM
  3. PANTOLOC [Concomitant]
     Active Substance: PANTOPRAZOLE SODIUM
  4. RITUXAN [Suspect]
     Active Substance: RITUXIMAB
     Route: 042
     Dates: start: 20190716
  5. DULOXETINE. [Concomitant]
     Active Substance: DULOXETINE
  6. IRON [Concomitant]
     Active Substance: IRON
  7. VIMOVO [Concomitant]
     Active Substance: ESOMEPRAZOLE MAGNESIUM\NAPROXEN
  8. SOLU?MEDROL [Concomitant]
     Active Substance: METHYLPREDNISOLONE SODIUM SUCCINATE
     Indication: PREMEDICATION
     Dosage: EXPIRY DATE: FEB/2023
     Route: 042
     Dates: start: 20190702
  9. TOVIAZ [Concomitant]
     Active Substance: FESOTERODINE FUMARATE
  10. CITALOPRAM [Concomitant]
     Active Substance: CITALOPRAM HYDROBROMIDE
  11. MONTELUKAST [Concomitant]
     Active Substance: MONTELUKAST SODIUM
  12. BUTRANS [Concomitant]
     Active Substance: BUPRENORPHINE
  13. RITUXAN [Suspect]
     Active Substance: RITUXIMAB
     Indication: RHEUMATOID ARTHRITIS
     Dosage: DAY 1; 15
     Route: 042
     Dates: start: 20190702
  14. LASIX [Concomitant]
     Active Substance: FUROSEMIDE
  15. COLACE [Concomitant]
     Active Substance: DOCUSATE SODIUM
  16. TYLENOL [Concomitant]
     Active Substance: ACETAMINOPHEN
     Indication: PREMEDICATION
     Dosage: OCCASIONALLY PATIENT WILL TAKE AT HOME PRIOR TO INFUSION AND THEREFORE NOT ADMINISTERED IN CLINIC
     Route: 048
     Dates: start: 20190702

REACTIONS (13)
  - Oxygen saturation decreased [Unknown]
  - Intentional product use issue [Unknown]
  - Heart rate increased [Unknown]
  - Osteoarthritis [Unknown]
  - Blood pressure systolic increased [Unknown]
  - Peripheral swelling [Unknown]
  - Pain in extremity [Unknown]
  - Fall [Unknown]
  - Cough [Unknown]
  - Erythema [Unknown]
  - Blood pressure systolic abnormal [Unknown]
  - Blood pressure diastolic abnormal [Unknown]
  - Off label use [Unknown]

NARRATIVE: CASE EVENT DATE: 20190702
